FAERS Safety Report 12196145 (Version 1)
Quarter: 2016Q1

REPORT INFORMATION
  Report Type: Report from Study
  Country: GB (occurrence: GB)
  Receive Date: 20160321
  Receipt Date: 20160321
  Transmission Date: 20160526
  Serious: Yes (Hospitalization)
  Sender: FDA-Public Use
  Company Number: GB-ABBVIE-16K-167-1584225-00

PATIENT
  Age: 40 Year
  Sex: Female
  Weight: 70.6 kg

DRUGS (3)
  1. MEBEVERINE [Concomitant]
     Active Substance: MEBEVERINE
     Indication: FLATULENCE
     Dates: start: 20151123
  2. HUMIRA [Suspect]
     Active Substance: ADALIMUMAB
     Indication: PRODUCT USED FOR UNKNOWN INDICATION
     Route: 058
     Dates: start: 20140818
  3. NEFOPAM [Concomitant]
     Active Substance: NEFOPAM
     Indication: ANALGESIC THERAPY
     Dates: start: 20151123

REACTIONS (5)
  - Flatulence [Unknown]
  - Pain [Unknown]
  - Dyspepsia [Recovered/Resolved]
  - Abdominal pain [Recovered/Resolved]
  - Diarrhoea [Recovered/Resolved]

NARRATIVE: CASE EVENT DATE: 20151115
